FAERS Safety Report 6000318-5 (Version None)
Quarter: 2008Q4

REPORT INFORMATION
  Report Type: 
  Country: None (occurrence: None)
  Receive Date: 20081215
  Receipt Date: 20081203
  Transmission Date: 20090506
  Serious: Yes (Hospitalization, Disabling, Other)
  Sender: FDA-Public Use
  Company Number: PL-ROCHE-586587

PATIENT
  Sex: Female
  Weight: 59 kg

DRUGS (6)
  1. BONIVA [Suspect]
     Indication: OSTEOPOROSIS
     Dosage: STRENGTH: 3 MG/3 ML
     Route: 042
     Dates: start: 20070701, end: 20080701
  2. BISOCARD [Concomitant]
     Dosage: DOSAGE REGIMEN: 1XDAY
     Route: 048
     Dates: start: 20060101
  3. AMLOZEK [Concomitant]
     Dosage: DOSAGE REGIMEN: 1XDAY
     Route: 048
     Dates: start: 20030101, end: 20080901
  4. INHIBACE [Concomitant]
     Dosage: DOSAGE REGIMEN: 1XDAY
     Route: 048
  5. FOSAMAX [Concomitant]
     Indication: OSTEOPOROSIS
     Route: 048
     Dates: start: 19990101, end: 20050401
  6. RISEDRONATE SODIUM [Concomitant]
     Indication: OSTEOPOROSIS
     Route: 048
     Dates: start: 20050601, end: 20061201

REACTIONS (4)
  - BONE DISORDER [None]
  - BONE PAIN [None]
  - FEMUR FRACTURE [None]
  - PATHOLOGICAL FRACTURE [None]
